FAERS Safety Report 7965885-0 (Version None)
Quarter: 2011Q4

REPORT INFORMATION
  Report Type: 
  Country: None (occurrence: None)
  Receive Date: 20111208
  Receipt Date: 20111206
  Transmission Date: 20120403
  Serious: Yes (Hospitalization, Other)
  Sender: FDA-Public Use
  Company Number: US-GLAXOSMITHKLINE-A0956913A

PATIENT
  Sex: Female

DRUGS (8)
  1. CALCIUM WITH VITAMIN D [Concomitant]
  2. LIPITOR [Concomitant]
  3. LOPRESSOR [Concomitant]
  4. DIOVAN [Concomitant]
  5. SYNTHROID [Concomitant]
  6. NEXIUM [Concomitant]
  7. PROMACTA [Suspect]
     Indication: IDIOPATHIC THROMBOCYTOPENIC PURPURA
     Dosage: 50MG PER DAY
     Route: 048
  8. ASCORBIC ACID [Concomitant]

REACTIONS (3)
  - THROMBOCYTOPENIA [None]
  - PLATELET COUNT INCREASED [None]
  - PLATELET COUNT ABNORMAL [None]
